FAERS Safety Report 18691469 (Version 3)
Quarter: 2021Q1

REPORT INFORMATION
  Report Type: Report from Study
  Country: IT (occurrence: IT)
  Receive Date: 20210101
  Receipt Date: 20210222
  Transmission Date: 20210419
  Serious: Yes (Other)
  Sender: FDA-Public Use
  Company Number: IT-TAKEDA-2020TUS046150

PATIENT
  Age: 53 Year
  Sex: Male

DRUGS (38)
  1. CIPROFLOXACIN. [Concomitant]
     Active Substance: CIPROFLOXACIN
     Indication: PYREXIA
     Dosage: 500 MILLIGRAM, BID
     Route: 065
  2. DAPTOMYCIN. [Concomitant]
     Active Substance: DAPTOMYCIN
     Indication: STAPHYLOCOCCAL INFECTION
     Dosage: 500 MILLIGRAM, QD
     Route: 065
     Dates: start: 20201005, end: 20201013
  3. LOBIVON [Concomitant]
     Active Substance: NEBIVOLOL HYDROCHLORIDE
     Indication: HYPERTENSION
     Dosage: 5 MILLIGRAM, QD
     Route: 065
     Dates: start: 20191128
  4. MEDROL [Concomitant]
     Active Substance: METHYLPREDNISOLONE
     Dosage: 8 MILLIGRAM, QD
     Route: 065
     Dates: start: 20200922, end: 20201005
  5. ADALIMUMAB [Concomitant]
     Active Substance: ADALIMUMAB
     Indication: PSORIASIS
     Dosage: UNK
     Route: 065
     Dates: start: 20160920, end: 201709
  6. AUGMENTIN [Concomitant]
     Active Substance: AMOXICILLIN\CLAVULANATE POTASSIUM
     Indication: PROPHYLAXIS
     Dosage: UNK
     Route: 065
     Dates: start: 20161206, end: 20161212
  7. LOBIVON [Concomitant]
     Active Substance: NEBIVOLOL HYDROCHLORIDE
     Dosage: 5 MILLIGRAM, AS NEEDED
     Route: 065
     Dates: start: 20110322, end: 20140707
  8. ADVATE [Suspect]
     Active Substance: ANTIHEMOPHILIC FACTOR, HUMAN RECOMBINANT
     Indication: PROPHYLAXIS
     Dosage: UNK
     Route: 065
  9. APROVEL [Concomitant]
     Active Substance: IRBESARTAN
     Indication: HYPERTENSION
     Dosage: 150 MILLIGRAM, QD
     Route: 065
     Dates: start: 20201029
  10. RIFAMPIN. [Concomitant]
     Active Substance: RIFAMPIN
     Indication: ARTHRALGIA
     Dosage: 600 MILLIGRAM, QD
     Route: 065
     Dates: start: 20201014, end: 20201215
  11. ADVATE [Suspect]
     Active Substance: ANTIHEMOPHILIC FACTOR, HUMAN RECOMBINANT
     Indication: PROPHYLAXIS
     Dosage: UNK
     Route: 065
  12. CIPROFLOXACIN. [Concomitant]
     Active Substance: CIPROFLOXACIN
     Indication: ARTHRALGIA
     Dosage: 5000 MILLIGRAM
     Route: 065
     Dates: start: 20201014, end: 20201215
  13. CIPROFLOXACIN. [Concomitant]
     Active Substance: CIPROFLOXACIN
     Indication: STAPHYLOCOCCAL INFECTION
     Dosage: 750 MILLIGRAM, BID
     Route: 065
     Dates: start: 20201006, end: 20201013
  14. MINOCYCLINE [Concomitant]
     Active Substance: MINOCYCLINE HYDROCHLORIDE
     Indication: JOINT SWELLING
  15. FERLIXIT [Concomitant]
     Active Substance: SODIUM FERRIC GLUCONATE COMPLEX
     Indication: STAPHYLOCOCCAL INFECTION
     Dosage: 62.5 MILLIGRAM, TID
     Route: 065
     Dates: start: 20140707, end: 20140724
  16. LEVOFLOXACIN. [Concomitant]
     Active Substance: LEVOFLOXACIN
     Indication: PROPHYLAXIS
     Dosage: 500 MILLIGRAM, QD
     Route: 065
     Dates: start: 20180813, end: 20180820
  17. MODURETIC 5?50 [Concomitant]
     Active Substance: AMILORIDE HYDROCHLORIDE\HYDROCHLOROTHIAZIDE
     Indication: HYPERTENSION
     Dosage: 22.5 MILLIGRAM, QD
     Route: 065
     Dates: start: 20201029
  18. RIFAMINA [Concomitant]
     Dosage: 600 MILLIGRAM, QD
     Route: 065
     Dates: start: 20201014, end: 20201215
  19. TAPENTADOL [Concomitant]
     Active Substance: TAPENTADOL
     Indication: ARTHRALGIA
     Dosage: 100 MILLIGRAM, QD
     Route: 065
     Dates: start: 20201014, end: 20201215
  20. RIFAMPIN. [Concomitant]
     Active Substance: RIFAMPIN
     Indication: JOINT SWELLING
  21. ADVATE [Suspect]
     Active Substance: ANTIHEMOPHILIC FACTOR, HUMAN RECOMBINANT
     Indication: PROPHYLAXIS
     Dosage: UNK
     Route: 065
  22. FERRO?GRAD [Concomitant]
     Active Substance: FERROUS SULFATE
     Indication: ANAEMIA
     Dosage: 1 DOSAGE FORM, QD
     Route: 065
     Dates: start: 20140725
  23. FOLIC ACID. [Concomitant]
     Active Substance: FOLIC ACID
     Indication: ANAEMIA
     Dosage: 5 MILLIGRAM, QD
     Route: 065
     Dates: start: 20100202
  24. MEDROL [Concomitant]
     Active Substance: METHYLPREDNISOLONE
     Indication: SWELLING
     Dosage: 16 OR 8 OR 4 AS NEEDED
     Route: 065
     Dates: start: 20190410
  25. MEDROL [Concomitant]
     Active Substance: METHYLPREDNISOLONE
     Indication: PSORIASIS
     Dosage: 16 OR 8 OR 4 AS NEEDED
     Route: 065
     Dates: start: 20180814, end: 20180823
  26. ARCOXIA [Concomitant]
     Active Substance: ETORICOXIB
     Indication: ARTHRALGIA
     Dosage: 90 MILLIGRAM, QD
     Route: 065
     Dates: start: 20180920, end: 20180922
  27. AUGMENTIN [Concomitant]
     Active Substance: AMOXICILLIN\CLAVULANATE POTASSIUM
     Indication: HAEMATURIA
     Dosage: 1 GRAM, BID
     Route: 065
     Dates: start: 20170426, end: 201705
  28. CIPROFLOXACIN. [Concomitant]
     Active Substance: CIPROFLOXACIN
     Indication: JOINT SWELLING
     Dosage: 500 MILLIGRAM, BID
     Route: 065
     Dates: start: 20201014, end: 20201215
  29. FERLIXIT [Concomitant]
     Active Substance: SODIUM FERRIC GLUCONATE COMPLEX
     Indication: ANAEMIA
     Dosage: 62.5 MILLIGRAM, 3/WEEK
     Dates: start: 20140707, end: 20140724
  30. MEDROL [Concomitant]
     Active Substance: METHYLPREDNISOLONE
     Dosage: 16 OR 8 OR 4 AS NEEDED
     Route: 065
     Dates: start: 20160517, end: 20180708
  31. MEDROL [Concomitant]
     Active Substance: METHYLPREDNISOLONE
     Dosage: 8 MILLIGRAM
     Route: 065
     Dates: start: 20160325, end: 20160516
  32. MINOCYCLINE [Concomitant]
     Active Substance: MINOCYCLINE HYDROCHLORIDE
     Indication: ARTHRALGIA
     Dosage: 100 MILLIGRAM, QD
     Route: 065
     Dates: start: 20201014, end: 20201215
  33. CIPROFLOXACIN. [Concomitant]
     Active Substance: CIPROFLOXACIN
     Indication: ANTIBIOTIC PROPHYLAXIS
     Dosage: 500 MILLIGRAM, BID
     Route: 065
  34. CIPROFLOXACIN. [Concomitant]
     Active Substance: CIPROFLOXACIN
     Dosage: 500 MILLIGRAM, BID
     Route: 065
     Dates: start: 20200921, end: 20201005
  35. CIPROFLOXACIN. [Concomitant]
     Active Substance: CIPROFLOXACIN
     Dosage: 500 MILLIGRAM, BID
     Route: 065
     Dates: start: 20181005, end: 20190123
  36. MAVIRET [Concomitant]
     Active Substance: GLECAPREVIR\PIBRENTASVIR
     Indication: INFECTION
     Dosage: 3 DOSAGE FORM, QD
     Route: 065
     Dates: start: 20180712, end: 20180907
  37. MEDROL [Concomitant]
     Active Substance: METHYLPREDNISOLONE
     Indication: ARTHRALGIA
     Dosage: 16 MILLIGRAM, QD
     Route: 065
     Dates: start: 20190917, end: 20200921
  38. TAPENTADOL [Concomitant]
     Active Substance: TAPENTADOL
     Indication: JOINT SWELLING
     Dosage: 100 MILLIGRAM, QD
     Dates: start: 201807

REACTIONS (4)
  - Joint swelling [Recovered/Resolved]
  - Haematuria [Recovered/Resolved]
  - Arthralgia [Recovered/Resolved]
  - Pyrexia [Recovered/Resolved]

NARRATIVE: CASE EVENT DATE: 20170426
